FAERS Safety Report 4692268-1 (Version None)
Quarter: 2005Q2

REPORT INFORMATION
  Report Type: 
  Country: None (occurrence: None)
  Receive Date: 20050614
  Receipt Date: 20050601
  Transmission Date: 20051028
  Serious: Yes (Death, Other)
  Sender: FDA-Public Use
  Company Number: 2005085499

PATIENT
  Age: 77 Year
  Sex: Male

DRUGS (1)
  1. DALTEPARIN (DALTEPARIN) [Suspect]
     Dosage: 2000 IU (1 D) INTRAVENOUS
     Route: 042

REACTIONS (4)
  - ASTHENIA [None]
  - EXTRADURAL HAEMATOMA [None]
  - MONOPLEGIA [None]
  - MULTI-ORGAN FAILURE [None]
